FAERS Safety Report 18194854 (Version 2)
Quarter: 2020Q3

REPORT INFORMATION
  Report Type: Spontaneous
  Country: US (occurrence: US)
  Receive Date: 20200825
  Receipt Date: 20200909
  Transmission Date: 20201103
  Serious: Yes (Hospitalization)
  Sender: FDA-Public Use
  Company Number: US-TEVA-2020-US-1818296

PATIENT
  Age: 23 Year
  Sex: Male

DRUGS (4)
  1. PALIPERIDONE PALMITATE [Suspect]
     Active Substance: PALIPERIDONE PALMITATE
     Indication: SCHIZOPHRENIA
     Route: 030
  2. RISPERIDONE. [Suspect]
     Active Substance: RISPERIDONE
     Route: 065
  3. PALIPERIDONE. [Suspect]
     Active Substance: PALIPERIDONE
     Indication: SCHIZOPHRENIA
     Dosage: 6 MILLIGRAM DAILY;
     Route: 048
  4. RISPERIDONE. [Suspect]
     Active Substance: RISPERIDONE
     Indication: SCHIZOPHRENIA
     Dosage: SLOW DOSE TITRATION FROM 1 MG ON DAY 1 TO 4 MG BY DAY 8
     Route: 065

REACTIONS (2)
  - Liver injury [Recovered/Resolved]
  - Hepatotoxicity [Recovered/Resolved]
